FAERS Safety Report 17064517 (Version 6)
Quarter: 2020Q1

REPORT INFORMATION
  Report Type: Spontaneous
  Country: US (occurrence: US)
  Receive Date: 20191122
  Receipt Date: 20200203
  Transmission Date: 20200409
  Serious: Yes (Hospitalization)
  Sender: FDA-Public Use
  Company Number: US-PFIZER INC-2019397905

PATIENT
  Age: 69 Year
  Sex: Male

DRUGS (3)
  1. SUTENT [Suspect]
     Active Substance: SUNITINIB MALATE
     Indication: NEOPLASM MALIGNANT
     Dosage: 25 MG, CYCLIC (DAYS 1-14 Q 21 DAYS) (DAILY FOR 14 DAYS)
     Route: 048
  2. SUTENT [Suspect]
     Active Substance: SUNITINIB MALATE
     Dosage: 1 DF, CYCLIC (TAKE 1 CAPSULE EVERY DAY FOR 14 DAYS THEN OFF 7 DAYS )
     Dates: start: 20191021
  3. SUTENT [Suspect]
     Active Substance: SUNITINIB MALATE
     Indication: GASTROINTESTINAL STROMAL TUMOUR
     Dosage: 37.5 MG, CYCLIC (37.5MG 2 WEEKS ON, 1 WEEK OFF)
     Route: 048

REACTIONS (2)
  - Weight decreased [Recovered/Resolved]
  - Malaise [Recovered/Resolved]
